FAERS Safety Report 6966786-7 (Version None)
Quarter: 2010Q3

REPORT INFORMATION
  Report Type: 
  Country: None (occurrence: None)
  Receive Date: 20100906
  Receipt Date: 20100823
  Transmission Date: 20110219
  Serious: Yes (Hospitalization)
  Sender: FDA-Public Use
  Company Number: PHHY2010US54667

PATIENT
  Sex: Female

DRUGS (1)
  1. RECLAST [Suspect]
     Indication: OSTEOPOROSIS
     Dosage: 5 MG, YEARLY
     Route: 042
     Dates: start: 20100409

REACTIONS (10)
  - CHILLS [None]
  - DEHYDRATION [None]
  - DIARRHOEA [None]
  - DYSGEUSIA [None]
  - FAECES DISCOLOURED [None]
  - INFLUENZA LIKE ILLNESS [None]
  - LOSS OF CONSCIOUSNESS [None]
  - PAIN [None]
  - PRURITUS [None]
  - PYREXIA [None]
